FAERS Safety Report 19781892 (Version 4)
Quarter: 2022Q1

REPORT INFORMATION
  Report Type: Report from Study
  Country: US (occurrence: US)
  Receive Date: 20210902
  Receipt Date: 20220321
  Transmission Date: 20220424
  Serious: No
  Sender: FDA-Public Use
  Company Number: NVSC2021US197459

PATIENT
  Age: 76 Year
  Sex: Male

DRUGS (4)
  1. ENTRESTO [Suspect]
     Active Substance: SACUBITRIL\VALSARTAN
     Indication: Product used for unknown indication
     Dosage: 50 MG, BID (24/26 MG)
     Route: 048
     Dates: start: 20210825
  2. ENTRESTO [Suspect]
     Active Substance: SACUBITRIL\VALSARTAN
     Dosage: 1 DF, BID (24/26 MG)
     Route: 065
     Dates: start: 20210826
  3. ENTRESTO [Suspect]
     Active Substance: SACUBITRIL\VALSARTAN
     Dosage: 1 DF, BID (24/26 MG)
     Route: 065
     Dates: start: 20210827
  4. ENTRESTO [Suspect]
     Active Substance: SACUBITRIL\VALSARTAN
     Dosage: 50 MG, BID (24/26 MG)
     Route: 065
     Dates: start: 20220303

REACTIONS (12)
  - Vision blurred [Unknown]
  - Back pain [Unknown]
  - Dysphagia [Unknown]
  - Dysphonia [Unknown]
  - Nervousness [Unknown]
  - Dizziness [Recovering/Resolving]
  - Rash [Recovered/Resolved]
  - Pruritus [Recovered/Resolved]
  - Pruritus [Unknown]
  - Hypotension [Unknown]
  - Cough [Unknown]
  - Product dose omission issue [Unknown]

NARRATIVE: CASE EVENT DATE: 20210827
